FAERS Safety Report 25576684 (Version 1)
Quarter: 2025Q3

REPORT INFORMATION
  Report Type: Spontaneous
  Country: EU (occurrence: EU)
  Receive Date: 20250718
  Receipt Date: 20250718
  Transmission Date: 20251021
  Serious: Yes (Hospitalization)
  Sender: NOVARTIS
  Company Number: EU-POLFAT-164-2025

PATIENT
  Age: 38 Year
  Sex: Female

DRUGS (7)
  1. CYCLOSPORINE [Interacting]
     Active Substance: CYCLOSPORINE
     Indication: Product used for unknown indication
     Dosage: 250 MG, QD (CYCLOSPORINE: 150 MG IN THE MORNING AND 100 MG IN THE EVENING)
     Route: 065
  2. RIFAMPIN [Interacting]
     Active Substance: RIFAMPIN
     Indication: Product used for unknown indication
     Dosage: 600 MG, QD (DOSAGE REGIMEN: 300MG TWICE A DAY)
     Route: 065
  3. CLINDAMYCIN [Concomitant]
     Active Substance: CLINDAMYCIN
     Indication: Product used for unknown indication
     Dosage: 600 MG, QD (300MG TWICE DAILY)
     Route: 065
  4. METFORMIN [Concomitant]
     Active Substance: METFORMIN HYDROCHLORIDE
     Indication: Product used for unknown indication
     Dosage: 850 MG, QD
     Route: 065
  5. METHYLPREDNISOLONE [Concomitant]
     Active Substance: METHYLPREDNISOLONE
     Indication: Product used for unknown indication
     Dosage: 16 MG, QD
     Route: 065
  6. ADAPALENE [Concomitant]
     Active Substance: ADAPALENE
     Indication: Product used for unknown indication
     Route: 065
  7. BENZOYL PEROXIDE [Concomitant]
     Active Substance: BENZOYL PEROXIDE
     Indication: Product used for unknown indication
     Route: 065

REACTIONS (4)
  - Drug interaction [Recovered/Resolved]
  - Adverse reaction [Recovered/Resolved]
  - Pain of skin [Unknown]
  - Pruritus [Unknown]
